FAERS Safety Report 16866125 (Version 2)
Quarter: 2019Q4

REPORT INFORMATION
  Report Type: Spontaneous
  Country: JP (occurrence: JP)
  Receive Date: 20190930
  Receipt Date: 20191114
  Transmission Date: 20200122
  Serious: Yes (Hospitalization, Other)
  Sender: FDA-Public Use
  Company Number: JP-SA-2019SA266475

PATIENT
  Age: 68 Year
  Sex: Male

DRUGS (2)
  1. ELPLAT [Suspect]
     Active Substance: OXALIPLATIN
     Indication: GASTRIC CANCER
     Dosage: UNK UNK, QD
     Route: 041
  2. TS-1 [Concomitant]
     Active Substance: GIMERACIL\OTERACIL\TEGAFUR
     Indication: GASTRIC CANCER
     Dosage: UNK UNK, UNK
     Route: 048

REACTIONS (5)
  - Venoocclusive liver disease [Unknown]
  - Liver injury [Unknown]
  - Condition aggravated [Recovered/Resolved]
  - Portal hypertension [Unknown]
  - Varices oesophageal [Recovered/Resolved]
